FAERS Safety Report 13395520 (Version 1)
Quarter: 2017Q2

REPORT INFORMATION
  Report Type: Spontaneous
  Country: US (occurrence: US)
  Receive Date: 20170401
  Receipt Date: 20170401
  Transmission Date: 20170830
  Serious: Yes (Other)
  Sender: FDA-Public Use
  Company Number: None

PATIENT
  Age: 58 Year
  Sex: Female
  Weight: 71.1 kg

DRUGS (17)
  1. LEVOFLOXACIN. [Suspect]
     Active Substance: LEVOFLOXACIN
     Indication: PNEUMONIA
     Dosage: ?          QUANTITY:7 TABLET(S);?
     Route: 048
     Dates: start: 20170323, end: 20170329
  2. ARMOUR THYROID [Concomitant]
     Active Substance: THYROID, PORCINE
  3. ALBUTEROL. [Concomitant]
     Active Substance: ALBUTEROL
  4. SIMVASTATIN. [Concomitant]
     Active Substance: SIMVASTATIN
  5. TESTOSTERONE. [Concomitant]
     Active Substance: TESTOSTERONE
  6. XANAX [Concomitant]
     Active Substance: ALPRAZOLAM
  7. VESICARE [Concomitant]
     Active Substance: SOLIFENACIN SUCCINATE
  8. PRISTIQ EXTENDED-RELEASE [Concomitant]
     Active Substance: DESVENLAFAXINE SUCCINATE
  9. TRAZODONE [Concomitant]
     Active Substance: TRAZODONE HYDROCHLORIDE
  10. ESTROGEN [Concomitant]
     Active Substance: ESTROGENS
  11. CA WITH VITAMIN D [Concomitant]
  12. VITAMIN D [Concomitant]
     Active Substance: CHOLECALCIFEROL
  13. MAGNESIUM [Concomitant]
     Active Substance: MAGNESIUM
  14. MYRBETRIQ [Concomitant]
     Active Substance: MIRABEGRON
  15. PROGESTERON [Concomitant]
     Active Substance: PROGESTERONE
  16. MULTIVITAMIN [Concomitant]
     Active Substance: VITAMINS
  17. VITAMIN ADK [Concomitant]

REACTIONS (1)
  - Tendonitis [None]

NARRATIVE: CASE EVENT DATE: 20170328
